FAERS Safety Report 8086879-3 (Version None)
Quarter: 2012Q1

REPORT INFORMATION
  Report Type: 
  Country: None (occurrence: None)
  Receive Date: 20120128
  Receipt Date: 20110614
  Transmission Date: 20120608
  Serious: No
  Sender: FDA-Public Use
  Company Number: US-ABBOTT-11P-163-0732245-00

PATIENT
  Sex: Male
  Weight: 104.42 kg

DRUGS (6)
  1. CADUET [Concomitant]
     Indication: BLOOD PRESSURE
  2. CADUET [Concomitant]
     Indication: BLOOD CHOLESTEROL
  3. RELAFEN [Concomitant]
     Indication: SPINAL OSTEOARTHRITIS
     Dates: start: 19990101
  4. HUMIRA [Suspect]
     Indication: RHEUMATOID ARTHRITIS
     Route: 058
     Dates: start: 20110602
  5. METHOTREXATE [Concomitant]
     Indication: PRODUCT USED FOR UNKNOWN INDICATION
  6. PREDNISONE TAB [Concomitant]
     Indication: PRODUCT USED FOR UNKNOWN INDICATION

REACTIONS (2)
  - RASH PRURITIC [None]
  - RASH MACULAR [None]
